FAERS Safety Report 14213575 (Version 1)
Quarter: 2017Q4

REPORT INFORMATION
  Report Type: Report from Study
  Country: None (occurrence: US)
  Receive Date: 20171122
  Receipt Date: 20171122
  Transmission Date: 20180321
  Serious: Yes (Hospitalization, Other)
  Sender: FDA-Public Use
  Company Number: US-ABBVIE-17K-163-2166854-00

PATIENT
  Age: 45 Year
  Sex: Female

DRUGS (1)
  1. HUMIRA [Suspect]
     Active Substance: ADALIMUMAB
     Indication: PSORIASIS
     Route: 058
     Dates: start: 201707, end: 20171009

REACTIONS (10)
  - Limb injury [Recovering/Resolving]
  - Musculoskeletal disorder [Unknown]
  - Pyrexia [Recovered/Resolved]
  - Traumatic haemorrhage [Recovered/Resolved]
  - Nephrolithiasis [Unknown]
  - Localised infection [Recovered/Resolved]
  - Pain [Recovered/Resolved]
  - Psoriasis [Not Recovered/Not Resolved]
  - Limb traumatic amputation [Recovering/Resolving]
  - Bone fragmentation [Recovered/Resolved]

NARRATIVE: CASE EVENT DATE: 2017
